FAERS Safety Report 21579861 (Version 1)
Quarter: 2022Q4

REPORT INFORMATION
  Report Type: Report from Study
  Country: DE (occurrence: DE)
  Receive Date: 20221110
  Receipt Date: 20221110
  Transmission Date: 20230113
  Serious: Yes (Other)
  Sender: FDA-Public Use
  Company Number: DE-LEO Pharma-346740

PATIENT
  Age: 88 Year
  Sex: Male

DRUGS (1)
  1. BRODALUMAB [Suspect]
     Active Substance: BRODALUMAB
     Indication: Psoriasis
     Dosage: USUAL DOSE (210 MG)
     Route: 058
     Dates: start: 201809, end: 201903

REACTIONS (1)
  - Depressed mood [Recovered/Resolved]
